FAERS Safety Report 24147130 (Version 1)
Quarter: 2024Q3

REPORT INFORMATION
  Report Type: Spontaneous
  Country: US (occurrence: None)
  Receive Date: 20240726
  Receipt Date: 20240726
  Transmission Date: 20241016
  Serious: Yes (Other)
  Sender: Public
  Company Number: None

PATIENT
  Age: 53 Year
  Sex: Male

DRUGS (1)
  1. TESTOSTERONE [Suspect]
     Active Substance: TESTOSTERONE
     Indication: Hypogonadism
     Dosage: FREQUENCY : DAILY;?
     Route: 062
     Dates: start: 20240516, end: 20240615

REACTIONS (4)
  - Mouth ulceration [None]
  - Mouth haemorrhage [None]
  - Oral pain [None]
  - Skin exfoliation [None]

NARRATIVE: CASE EVENT DATE: 20240516
